FAERS Safety Report 8218475-9 (Version None)
Quarter: 2012Q1

REPORT INFORMATION
  Report Type: 
  Country: None (occurrence: None)
  Receive Date: 20120305
  Receipt Date: 20111215
  Transmission Date: 20120608
  Serious: No
  Sender: FDA-Public Use
  Company Number: 1000026305

PATIENT
  Sex: Female

DRUGS (3)
  1. DALIRESP [Suspect]
     Indication: CHRONIC OBSTRUCTIVE PULMONARY DISEASE
     Dosage: 500 MCG (500 MCG, 1 IN 1 D), ORAL; 3500 MCG (3500 MCG, 1 IN 1 D), ORAL
     Route: 048
     Dates: start: 20111206, end: 20111212
  2. DALIRESP [Suspect]
     Indication: CHRONIC OBSTRUCTIVE PULMONARY DISEASE
     Dosage: 500 MCG (500 MCG, 1 IN 1 D), ORAL; 3500 MCG (3500 MCG, 1 IN 1 D), ORAL
     Route: 048
     Dates: start: 20111214, end: 20111214
  3. PREDNISONE TAB [Concomitant]

REACTIONS (6)
  - MALAISE [None]
  - HEADACHE [None]
  - ACCIDENTAL OVERDOSE [None]
  - DIARRHOEA [None]
  - DIZZINESS [None]
  - ANXIETY [None]
